FAERS Safety Report 6290914-2 (Version None)
Quarter: 2009Q3

REPORT INFORMATION
  Report Type: 
  Country: None (occurrence: None)
  Receive Date: 20090730
  Receipt Date: 20090723
  Transmission Date: 20100115
  Serious: Yes (Death, Hospitalization)
  Sender: FDA-Public Use
  Company Number: US-NOVOPROD-289723

PATIENT

DRUGS (1)
  1. NOVOLIN R [Suspect]
     Indication: DIABETES MELLITUS
     Dosage: 60-70 UNITS/HOUR
     Dates: end: 20090701

REACTIONS (2)
  - BLOOD GLUCOSE INCREASED [None]
  - SEPSIS [None]
